FAERS Safety Report 7810806-4 (Version None)
Quarter: 2011Q4

REPORT INFORMATION
  Report Type: 
  Country: None (occurrence: None)
  Receive Date: 20111012
  Receipt Date: 20111012
  Transmission Date: 20120403
  Serious: Yes (Other)
  Sender: FDA-Public Use
  Company Number: None

PATIENT
  Age: 61 Year
  Sex: Female
  Weight: 83.9154 kg

DRUGS (2)
  1. VENLAFAXINE HCL EXTENDED-RELEASE [Suspect]
     Indication: ANXIETY
     Dosage: 1 CAPSULE DAILY BY MOUTH
     Route: 048
     Dates: start: 20101020, end: 20101129
  2. VENLAFAXINE HCL EXTENDED-RELEASE [Suspect]
     Indication: PANIC ATTACK
     Dosage: 1 CAPSULE DAILY BY MOUTH
     Route: 048
     Dates: start: 20101020, end: 20101129

REACTIONS (6)
  - NAUSEA [None]
  - HEADACHE [None]
  - NIGHTMARE [None]
  - ABNORMAL DREAMS [None]
  - SLEEP DISORDER [None]
  - PRODUCT SUBSTITUTION ISSUE [None]
